FAERS Safety Report 8364711-8 (Version None)
Quarter: 2012Q2

REPORT INFORMATION
  Report Type: 
  Country: None (occurrence: None)
  Receive Date: 20120516
  Receipt Date: 20120507
  Transmission Date: 20120825
  Serious: Yes (Other)
  Sender: FDA-Public Use
  Company Number: US-BRISTOL-MYERS SQUIBB COMPANY-16574907

PATIENT
  Age: 68 Year
  Sex: Male
  Weight: 85 kg

DRUGS (1)
  1. ERBITUX [Suspect]
     Indication: HEAD AND NECK CANCER
     Dosage: RESTAATED:MAR2012
     Dates: start: 20110701

REACTIONS (3)
  - GASTROINTESTINAL TUBE INSERTION [None]
  - DRUG EFFECT DECREASED [None]
  - FEEDING TUBE COMPLICATION [None]
